FAERS Safety Report 14407669 (Version 4)
Quarter: 2018Q1

REPORT INFORMATION
  Report Type: Report from Study
  Country: US (occurrence: US)
  Receive Date: 20180118
  Receipt Date: 20180305
  Transmission Date: 20180509
  Serious: Yes (Hospitalization)
  Sender: FDA-Public Use
  Company Number: US-ACTELION-A-NJ2018-165705

PATIENT
  Age: 47 Year
  Sex: Male
  Weight: 107.94 kg

DRUGS (7)
  1. CHLORTHALIDONE. [Concomitant]
     Active Substance: CHLORTHALIDONE
     Dosage: 25 MG, Q M-W-F
  2. SILDENAFIL. [Concomitant]
     Active Substance: SILDENAFIL
     Dosage: 20 MG, TID
  3. ELIQUIS [Concomitant]
     Active Substance: APIXABAN
     Dosage: 5 MG, BID
  4. DOFETILIDE. [Concomitant]
     Active Substance: DOFETILIDE
     Dosage: 250 MG, Q12HRS
  5. ASA [Concomitant]
     Active Substance: ASPIRIN
  6. TRACLEER [Suspect]
     Active Substance: BOSENTAN
     Indication: PULMONARY ARTERIAL HYPERTENSION
     Dosage: 62.5 MG, BID
     Route: 048
  7. TORSEMIDE. [Concomitant]
     Active Substance: TORSEMIDE
     Dosage: 100 MG, QD

REACTIONS (6)
  - Staphylococcal infection [Unknown]
  - Lung infection [Unknown]
  - Cardiac failure [Recovered/Resolved]
  - Staphylococcal sepsis [Recovered/Resolved]
  - Malaise [Unknown]
  - Anaphylactic reaction [Recovered/Resolved]
